FAERS Safety Report 6018795-2 (Version None)
Quarter: 2008Q4

REPORT INFORMATION
  Report Type: 
  Country: None (occurrence: None)
  Receive Date: 20081222
  Receipt Date: 20081205
  Transmission Date: 20090506
  Serious: Yes (Death, Hospitalization)
  Sender: FDA-Public Use
  Company Number: KV200800986

PATIENT
  Age: 64 Year
  Sex: Male

DRUGS (5)
  1. ISOSORBIDE MONONITRATE [Suspect]
     Indication: HYPERTENSION
  2. TOPROL-XL [Concomitant]
  3. AVACOR [Concomitant]
  4. NIACIN [Concomitant]
  5. ASPIRIN [Concomitant]

REACTIONS (4)
  - COMA [None]
  - CORONARY ARTERY OCCLUSION [None]
  - MYOCARDIAL INFARCTION [None]
  - PRODUCT QUALITY ISSUE [None]
